FAERS Safety Report 25162691 (Version 5)
Quarter: 2025Q2

REPORT INFORMATION
  Report Type: Spontaneous
  Country: IT (occurrence: IT)
  Receive Date: 20250404
  Receipt Date: 20250516
  Transmission Date: 20250717
  Serious: Yes (Other)
  Sender: NOVARTIS
  Company Number: IT-002147023-NVSC2025IT055454

PATIENT
  Age: 24 Year
  Sex: Female

DRUGS (18)
  1. LAPATINIB [Suspect]
     Active Substance: LAPATINIB
     Indication: Breast cancer metastatic
     Dosage: 1250 MG, QD (CYCLICAL;  ON A CONTINUOUS BASIS)
     Route: 065
  2. LAPATINIB [Suspect]
     Active Substance: LAPATINIB
     Indication: HER2 positive breast cancer
  3. PACLITAXEL [Suspect]
     Active Substance: PACLITAXEL
     Indication: Breast cancer metastatic
     Dosage: 80 MG/M2, QW (FOR 3 OF 4?WEEKS)
     Route: 042
  4. PACLITAXEL [Suspect]
     Active Substance: PACLITAXEL
     Indication: HER2 positive breast cancer
  5. ZOLEDRONIC ACID [Suspect]
     Active Substance: ZOLEDRONIC ACID
     Indication: Drug therapy
     Dosage: 4 MG, Q4W, (DAY 1, EVERY 4 WEEKS) 24 CYCLES
     Route: 042
  6. ZOLEDRONIC ACID [Suspect]
     Active Substance: ZOLEDRONIC ACID
     Indication: Breast cancer metastatic
  7. CAPECITABINE [Suspect]
     Active Substance: CAPECITABINE
     Indication: Breast cancer metastatic
     Route: 065
  8. CAPECITABINE [Suspect]
     Active Substance: CAPECITABINE
     Indication: HER2 positive breast cancer
     Dosage: 2000 MG/M2, QD (ON DAYS 1 THROUGH 14 OF A 21-DAY CYCLE)
     Route: 065
  9. CARBOPLATIN [Suspect]
     Active Substance: CARBOPLATIN
     Indication: Breast cancer metastatic
     Route: 042
  10. CARBOPLATIN [Suspect]
     Active Substance: CARBOPLATIN
     Indication: HER2 positive breast cancer
  11. TRASTUZUMAB [Suspect]
     Active Substance: TRASTUZUMAB
     Indication: Breast cancer metastatic
     Dosage: 2 MG/KG, QW (CYCLICAL)
     Route: 042
  12. TRASTUZUMAB [Suspect]
     Active Substance: TRASTUZUMAB
     Indication: HER2 positive breast cancer
     Dosage: 6 MG/KG, Q3W (EVERY 21 DAYS) (CYCLICAL)
     Route: 042
  13. TRASTUZUMAB [Suspect]
     Active Substance: TRASTUZUMAB
     Route: 042
  14. TRASTUZUMAB [Suspect]
     Active Substance: TRASTUZUMAB
     Route: 042
  15. VITAMIN D [Suspect]
     Active Substance: VITAMIN D NOS
     Indication: Vitamin supplementation
     Route: 048
  16. CALCIUM CITRATE [Concomitant]
     Active Substance: CALCIUM CITRATE
     Indication: Mineral supplementation
     Route: 048
  17. ERYTHROPOIETIN [Concomitant]
     Active Substance: ERYTHROPOIETIN
     Indication: Anaemia
     Route: 048
  18. IRON [Concomitant]
     Active Substance: IRON
     Indication: Anaemia
     Route: 065

REACTIONS (17)
  - Leukopenia [Recovered/Resolved]
  - Leukopenia [Unknown]
  - Neutropenia [Recovered/Resolved]
  - Neutropenia [Unknown]
  - Palmar-plantar erythrodysaesthesia syndrome [Unknown]
  - Anaemia [Recovered/Resolved]
  - Anaemia [Unknown]
  - Alopecia [Unknown]
  - Metastases to central nervous system [Unknown]
  - Disease progression [Unknown]
  - Diarrhoea [Unknown]
  - Neuropathy peripheral [Unknown]
  - Palmar-plantar erythrodysaesthesia syndrome [Unknown]
  - Alopecia [Unknown]
  - Neutropenia [Unknown]
  - Anaemia [Unknown]
  - Drug ineffective [Unknown]
